FAERS Safety Report 8409439-0 (Version None)
Quarter: 2012Q2

REPORT INFORMATION
  Report Type: 
  Country: None (occurrence: None)
  Receive Date: 20120605
  Receipt Date: 20120528
  Transmission Date: 20120825
  Serious: Yes (Other)
  Sender: FDA-Public Use
  Company Number: GR-AMGEN-GRCSP2012034044

PATIENT
  Sex: Female

DRUGS (1)
  1. ENBREL [Suspect]
     Indication: RHEUMATOID ARTHRITIS
     Dosage: 50 MG, UNK

REACTIONS (4)
  - RHEUMATOID ARTHRITIS [None]
  - PAIN IN EXTREMITY [None]
  - CONDITION AGGRAVATED [None]
  - GAIT DISTURBANCE [None]
